FAERS Safety Report 8106935-0 (Version None)
Quarter: 2012Q1

REPORT INFORMATION
  Report Type: 
  Country: None (occurrence: None)
  Receive Date: 20120202
  Receipt Date: 20120130
  Transmission Date: 20120608
  Serious: Yes (Other)
  Sender: FDA-Public Use
  Company Number: US-SANOFI-AVENTIS-2011SA046888

PATIENT
  Age: 65 Year
  Sex: Female

DRUGS (4)
  1. MULTAQ [Suspect]
     Indication: ATRIAL FIBRILLATION
     Route: 048
     Dates: start: 20110701
  2. VITAMIN TAB [Concomitant]
  3. DILTIAZEM HCL [Suspect]
     Route: 065
  4. DABIGATRAN ETEXILATE [Suspect]
     Route: 065
     Dates: start: 20120128

REACTIONS (8)
  - FATIGUE [None]
  - TREMOR [None]
  - PAIN [None]
  - BLOOD PRESSURE INCREASED [None]
  - HEADACHE [None]
  - ATRIAL FIBRILLATION [None]
  - TOOTH DISCOLOURATION [None]
  - CHEST PAIN [None]
